FAERS Safety Report 5209165-5 (Version None)
Quarter: 2007Q1

REPORT INFORMATION
  Report Type: 
  Country: None (occurrence: None)
  Receive Date: 20070116
  Receipt Date: 20070109
  Transmission Date: 20070707
  Serious: Yes (Congenital Anomaly)
  Sender: FDA-Public Use
  Company Number: US-GILEAD-2007-0011004

PATIENT
  Sex: Male

DRUGS (1)
  1. HEPSERA [Suspect]
     Route: 064
     Dates: start: 20060411, end: 20060616

REACTIONS (1)
  - ABNORMAL PALMAR/PLANTAR CREASES [None]
